FAERS Safety Report 5726400-5 (Version None)
Quarter: 2008Q2

REPORT INFORMATION
  Report Type: 
  Country: None (occurrence: None)
  Receive Date: 20080502
  Receipt Date: 20080424
  Transmission Date: 20081010
  Serious: Yes (Hospitalization, Other)
  Sender: FDA-Public Use
  Company Number: JP-ABBOTT-08P-087-0449810-00

PATIENT
  Age: 56 Year
  Sex: Male

DRUGS (6)
  1. CYCLOSPORINE [Suspect]
     Indication: INTERSTITIAL LUNG DISEASE
     Dosage: DAILY
     Dates: start: 19980701
  2. CYCLOSPORINE [Suspect]
     Dosage: DAILY
  3. CYCLOSPORINE [Suspect]
     Dosage: DAILY
  4. PREDNISOLONE ACETATE [Concomitant]
     Indication: INTERSTITIAL LUNG DISEASE
     Dosage: DAILY
  5. CYCLOPHOSPHAMIDE [Concomitant]
     Indication: INTERSTITIAL LUNG DISEASE
     Dosage: PULSE THERAPY DAILY TIMES TWO DOSES
  6. OXYGEN [Concomitant]
     Indication: INTERSTITIAL LUNG DISEASE
     Dosage: NOT REPORTED

REACTIONS (2)
  - INTERSTITIAL LUNG DISEASE [None]
  - PLATELET COUNT DECREASED [None]
